FAERS Safety Report 21803111 (Version 1)
Quarter: 2022Q4

REPORT INFORMATION
  Report Type: Report from Study
  Country: US (occurrence: US)
  Receive Date: 20221231
  Receipt Date: 20221231
  Transmission Date: 20230113
  Serious: No
  Sender: FDA-Public Use
  Company Number: US-ACORDA-ACO_174225_2022

PATIENT
  Sex: Male

DRUGS (5)
  1. INBRIJA [Suspect]
     Active Substance: LEVODOPA
     Indication: Parkinson^s disease
     Dosage: 2 DOSAGE FORM (84 MG, CAPSULE), PRN (NOT TO EXCEED 5 DOSES A DAY)
     Dates: start: 20221115
  2. INBRIJA [Suspect]
     Active Substance: LEVODOPA
     Indication: On and off phenomenon
     Dosage: 2 DOSAGE FORM (84 MG, CAPSULE), PRN (NOT TO EXCEED 5 DOSES A DAY)
     Dates: start: 20221115
  3. INBRIJA [Suspect]
     Active Substance: LEVODOPA
     Dosage: 2 DOSAGE FORM (84 MG, CAPSULE), PRN (NOT TO EXCEED 5 DOSES A DAY)
     Dates: start: 20221115
  4. CARBIDOPA\LEVODOPA [Concomitant]
     Active Substance: CARBIDOPA\LEVODOPA
     Indication: Product used for unknown indication
     Dosage: 25/100 MG 6X/QD
     Route: 065
  5. DONEPEZIL [Concomitant]
     Active Substance: DONEPEZIL
     Indication: Product used for unknown indication
     Dosage: 10 MILLIGRAM, QD
     Route: 065

REACTIONS (5)
  - Therapeutic product effect variable [Unknown]
  - Product residue present [Unknown]
  - Device issue [Unknown]
  - Wrong technique in device usage process [Unknown]
  - Cough [Unknown]

NARRATIVE: CASE EVENT DATE: 20221115
